FAERS Safety Report 21481655 (Version 1)
Quarter: 2022Q4

REPORT INFORMATION
  Report Type: Spontaneous
  Country: CN (occurrence: CN)
  Receive Date: 20221020
  Receipt Date: 20221020
  Transmission Date: 20230113
  Serious: Yes (Other)
  Sender: FDA-Public Use
  Company Number: None

PATIENT
  Age: 44 Year
  Sex: Female
  Weight: 47 kg

DRUGS (7)
  1. CYCLOPHOSPHAMIDE [Suspect]
     Active Substance: CYCLOPHOSPHAMIDE
     Indication: Breast cancer female
     Dosage: 800 MG, ONCE DAILY (DILUTED WITH NS 40 ML, 1ST CHEMOTHERAPY)
     Route: 042
     Dates: start: 20220722, end: 20220722
  2. CYCLOPHOSPHAMIDE [Suspect]
     Active Substance: CYCLOPHOSPHAMIDE
     Indication: Chemotherapy
  3. SODIUM CHLORIDE [Suspect]
     Active Substance: SODIUM CHLORIDE
     Indication: Medication dilution
     Dosage: 40ML, ONCE DAILY (DILUTED WITH CYCLOPHOSPHAMIDE 800 MG)
     Route: 042
     Dates: start: 20220722, end: 20220722
  4. SODIUM CHLORIDE [Suspect]
     Active Substance: SODIUM CHLORIDE
     Dosage: 100 ML, ONCE DAILY (DILUTED WITH EPIRUBICIN HYDROCHLORIDE 120 MG)
     Route: 041
     Dates: start: 20220722, end: 20220722
  5. EPIRUBICIN [Suspect]
     Active Substance: EPIRUBICIN
     Indication: Breast cancer female
     Dosage: 120 MG, ONCE DAILY (DILUTED WITH NS 100ML, 1ST CHEMOTHERAPY)
     Route: 041
     Dates: start: 20220722, end: 20220722
  6. EPIRUBICIN [Suspect]
     Active Substance: EPIRUBICIN
     Indication: Chemotherapy
  7. XIN RUI BAI [Concomitant]
     Indication: Product used for unknown indication
     Dosage: 3 MG
     Route: 058
     Dates: start: 20220723

REACTIONS (2)
  - White blood cell count decreased [Recovered/Resolved]
  - Agranulocytosis [Recovered/Resolved]

NARRATIVE: CASE EVENT DATE: 20220729
